FAERS Safety Report 5366511-X (Version None)
Quarter: 2007Q2

REPORT INFORMATION
  Report Type: 
  Country: None (occurrence: None)
  Receive Date: 20070622
  Receipt Date: 20070612
  Transmission Date: 20071010
  Serious: Yes (Death, Hospitalization)
  Sender: FDA-Public Use
  Company Number: JP-AMGEN-US228494

PATIENT
  Sex: Male

DRUGS (2)
  1. ENBREL [Suspect]
     Indication: RHEUMATOID ARTHRITIS
     Route: 058
     Dates: start: 20070327
  2. ISOCOTIN [Suspect]
     Dosage: UNSPECIFIED
     Route: 048
     Dates: start: 20070301

REACTIONS (2)
  - HEPATIC FUNCTION ABNORMAL [None]
  - JAUNDICE [None]
